FAERS Safety Report 6618713-X (Version None)
Quarter: 2010Q1

REPORT INFORMATION
  Report Type: 
  Country: None (occurrence: None)
  Receive Date: 20100305
  Receipt Date: 20100305
  Transmission Date: 20100710
  Serious: Yes (Disabling)
  Sender: FDA-Public Use
  Company Number: None

PATIENT
  Sex: Male
  Weight: 77.1115 kg

DRUGS (2)
  1. LYRICA [Suspect]
     Indication: NEUROPATHY PERIPHERAL
     Dosage: 300 MG DAILY
     Dates: start: 20060505
  2. LYRICA [Suspect]
     Indication: NEUROPATHY PERIPHERAL
     Dosage: 300 MG DAILY
     Dates: start: 20090801

REACTIONS (13)
  - APPETITE DISORDER [None]
  - DEPRESSION [None]
  - DEREALISATION [None]
  - DIZZINESS [None]
  - HEADACHE [None]
  - HYPOAESTHESIA [None]
  - INFERTILITY [None]
  - MUSCLE DISORDER [None]
  - SOMNOLENCE [None]
  - SUICIDAL IDEATION [None]
  - SWELLING [None]
  - VISION BLURRED [None]
  - WEIGHT DECREASED [None]
